FAERS Safety Report 6225052-8 (Version None)
Quarter: 2009Q2

REPORT INFORMATION
  Report Type: 
  Country: None (occurrence: None)
  Receive Date: 20090612
  Receipt Date: 20090403
  Transmission Date: 20091009
  Serious: No
  Sender: FDA-Public Use
  Company Number: US-ABBOTT-09P-163-0566752-00

PATIENT
  Sex: Female
  Weight: 58.112 kg

DRUGS (3)
  1. HUMIRA [Suspect]
     Indication: ANKYLOSING SPONDYLITIS
     Route: 058
     Dates: start: 20081001
  2. TRAMADOL HCL [Concomitant]
     Indication: PAIN
  3. UNKNOWN MUSCLE RELAXER [Concomitant]
     Indication: DRUG USE FOR UNKNOWN INDICATION

REACTIONS (4)
  - BURNING SENSATION [None]
  - MUSCULOSKELETAL STIFFNESS [None]
  - PAIN [None]
  - VISUAL IMPAIRMENT [None]
